FAERS Safety Report 23058433 (Version 1)
Quarter: 2023Q4

REPORT INFORMATION
  Report Type: Report from Study
  Country: KR (occurrence: KR)
  Receive Date: 20231012
  Receipt Date: 20231012
  Transmission Date: 20240109
  Serious: Yes (Other)
  Sender: FDA-Public Use
  Company Number: KR-BAYER-2023A143364

PATIENT
  Age: 63 Year
  Sex: Male

DRUGS (19)
  1. EYLEA [Suspect]
     Active Substance: AFLIBERCEPT
     Indication: Neovascular age-related macular degeneration
     Dosage: 50 UG, ONCE; RIGHT EYE, SOLUTION FOR INJECTION, 40 MG/ML
     Route: 031
     Dates: start: 20191118, end: 20191118
  2. EYLEA [Suspect]
     Active Substance: AFLIBERCEPT
     Dosage: 50 UG, ONCE; RIGHT EYE, SOLUTION FOR INJECTION, 40 MG/ML
     Route: 031
     Dates: start: 20191216, end: 20191216
  3. EYLEA [Suspect]
     Active Substance: AFLIBERCEPT
     Dosage: 50 UG, ONCE; RIGHT EYE, SOLUTION FOR INJECTION, 40 MG/ML
     Route: 031
     Dates: start: 20200114, end: 20200114
  4. EYLEA [Suspect]
     Active Substance: AFLIBERCEPT
     Dosage: 50 UG, ONCE; RIGHT EYE, SOLUTION FOR INJECTION, 40 MG/ML
     Route: 031
     Dates: start: 20200318, end: 20200318
  5. EYLEA [Suspect]
     Active Substance: AFLIBERCEPT
     Dosage: 50 UG, ONCE; RIGHT EYE, SOLUTION FOR INJECTION, 40 MG/ML
     Route: 031
     Dates: start: 20200518, end: 20200518
  6. EYLEA [Suspect]
     Active Substance: AFLIBERCEPT
     Dosage: 50 UG, ONCE; RIGHT EYE, SOLUTION FOR INJECTION, 40 MG/ML
     Route: 031
     Dates: start: 20200717, end: 20200717
  7. EYLEA [Suspect]
     Active Substance: AFLIBERCEPT
     Dosage: 50 UG, ONCE; RIGHT EYE, SOLUTION FOR INJECTION, 40 MG/ML
     Route: 031
     Dates: start: 20200914, end: 20200914
  8. EYLEA [Suspect]
     Active Substance: AFLIBERCEPT
     Dosage: 50 UG, ONCE; RIGHT EYE, SOLUTION FOR INJECTION, 40 MG/ML
     Route: 031
     Dates: start: 20201127, end: 20201127
  9. EYLEA [Suspect]
     Active Substance: AFLIBERCEPT
     Dosage: 50 UG, ONCE; RIGHT EYE, SOLUTION FOR INJECTION, 40 MG/ML
     Route: 031
     Dates: start: 20210210, end: 20210210
  10. EYLEA [Suspect]
     Active Substance: AFLIBERCEPT
     Dosage: 50 UG, ONCE; RIGHT EYE, SOLUTION FOR INJECTION, 40 MG/ML
     Route: 031
     Dates: start: 20210430, end: 20210430
  11. EYLEA [Suspect]
     Active Substance: AFLIBERCEPT
     Dosage: 50 UG, ONCE; RIGHT EYE, SOLUTION FOR INJECTION, 40 MG/ML
     Route: 031
     Dates: start: 20210702, end: 20210702
  12. EYLEA [Suspect]
     Active Substance: AFLIBERCEPT
     Dosage: 50 UG, ONCE; RIGHT EYE, SOLUTION FOR INJECTION, 40 MG/ML
     Route: 031
     Dates: start: 20210903, end: 20210903
  13. EYLEA [Suspect]
     Active Substance: AFLIBERCEPT
     Dosage: 50 UG, ONCE; RIGHT EYE, SOLUTION FOR INJECTION, 40 MG/ML
     Route: 031
     Dates: start: 20211126, end: 20211126
  14. EYLEA [Suspect]
     Active Substance: AFLIBERCEPT
     Dosage: 50 UG, ONCE; RIGHT EYE, SOLUTION FOR INJECTION, 40 MG/ML
     Route: 031
     Dates: start: 20220128, end: 20220128
  15. EYLEA [Suspect]
     Active Substance: AFLIBERCEPT
     Dosage: 50 UG, ONCE; RIGHT EYE, SOLUTION FOR INJECTION, 40 MG/ML
     Route: 031
     Dates: start: 20220314, end: 20220314
  16. EYLEA [Suspect]
     Active Substance: AFLIBERCEPT
     Dosage: 50 UG, ONCE; RIGHT EYE, SOLUTION FOR INJECTION, 40 MG/ML
     Route: 031
     Dates: start: 20220512, end: 20220512
  17. EYLEA [Suspect]
     Active Substance: AFLIBERCEPT
     Dosage: 50 UG, ONCE; RIGHT EYE, SOLUTION FOR INJECTION, 40 MG/ML
     Route: 031
     Dates: start: 20220714, end: 20220714
  18. EYLEA [Suspect]
     Active Substance: AFLIBERCEPT
     Dosage: 50 UG, ONCE; RIGHT EYE, SOLUTION FOR INJECTION, 40 MG/ML
     Route: 031
     Dates: start: 20220825, end: 20220825
  19. ALDACTONE [Concomitant]
     Active Substance: SPIRONOLACTONE
     Indication: Central serous chorioretinopathy
     Dosage: 50 MG
     Dates: start: 20200318

REACTIONS (1)
  - Neovascular age-related macular degeneration [Not Recovered/Not Resolved]

NARRATIVE: CASE EVENT DATE: 20210430
